FAERS Safety Report 5480273-7 (Version None)
Quarter: 2007Q4

REPORT INFORMATION
  Report Type: 
  Country: None (occurrence: None)
  Receive Date: 20071009
  Receipt Date: 20071004
  Transmission Date: 20080405
  Serious: Yes (Death, Other)
  Sender: FDA-Public Use
  Company Number: FR-BRISTOL-MYERS SQUIBB COMPANY-13930466

PATIENT
  Sex: Female

DRUGS (1)
  1. TAXOL [Suspect]
     Indication: OVARIAN CANCER
     Dosage: SOLUTION
     Route: 042

REACTIONS (3)
  - BREAST CANCER [None]
  - COGNITIVE DISORDER [None]
  - METASTASES TO NERVOUS SYSTEM [None]
